FAERS Safety Report 5580454-8 (Version None)
Quarter: 2008Q1

REPORT INFORMATION
  Report Type: 
  Country: None (occurrence: None)
  Receive Date: 20080103
  Receipt Date: 20070723
  Transmission Date: 20080703
  Serious: Yes (Other)
  Sender: FDA-Public Use
  Company Number: US-ASTRAZENECA-2006UW03653

PATIENT
  Age: 18843 Day
  Sex: Male
  Weight: 96.7 kg

DRUGS (22)
  1. SEROQUEL [Suspect]
     Indication: STRESS
     Route: 048
     Dates: start: 20030301, end: 20050401
  2. SEROQUEL [Suspect]
     Indication: DEPRESSION
     Route: 048
     Dates: start: 20030301, end: 20050401
  3. CLOZARIL [Concomitant]
     Dates: start: 20040101
  4. ZOLOFT [Concomitant]
     Dates: start: 20040101
  5. RISPERDAL [Concomitant]
     Indication: DEPRESSION
     Dates: start: 20040101, end: 20060901
  6. RISPERDAL [Concomitant]
     Indication: STRESS
     Dates: start: 20040101, end: 20060901
  7. DILTIAZEM [Concomitant]
     Indication: BLOOD PRESSURE
     Route: 048
     Dates: start: 20030301
  8. DILTIAZEM [Concomitant]
     Route: 048
     Dates: start: 20030818
  9. PPIROXICAM [Concomitant]
     Indication: PAIN
     Route: 048
     Dates: start: 20030801
  10. METFORMIN HCL [Concomitant]
     Indication: DIABETES MELLITUS
     Route: 048
     Dates: start: 20030818
  11. METFORMIN HCL [Concomitant]
     Route: 048
  12. METFORMIN HCL [Concomitant]
     Route: 048
     Dates: start: 20040719
  13. RANITIDINE HCL [Concomitant]
     Indication: STOMACH DISCOMFORT
     Route: 048
     Dates: start: 20040501
  14. TRAMADOL HCL [Concomitant]
     Indication: PAIN
     Route: 048
     Dates: start: 20030521
  15. HYDROCHLOROTHIAZIDE [Concomitant]
     Indication: FLUID RETENTION
     Route: 048
     Dates: start: 20030818
  16. HYDROCHLOROTHIAZIDE [Concomitant]
     Indication: BLOOD PRESSURE
     Route: 048
     Dates: start: 20030818
  17. GLYBURIDE [Concomitant]
     Indication: DIABETES MELLITUS
     Route: 048
     Dates: start: 20030910
  18. POTASSIUM CHLORIDE [Concomitant]
     Indication: SUPPLEMENTATION THERAPY
     Route: 048
     Dates: start: 20030901
  19. INDOMETHACIN [Concomitant]
     Route: 048
     Dates: start: 20030328
  20. PRILOSEC [Concomitant]
     Indication: GASTROOESOPHAGEAL REFLUX DISEASE
     Route: 048
     Dates: start: 20040719
  21. SALSALATE [Concomitant]
     Indication: BACK PAIN
     Route: 048
     Dates: start: 20070719
  22. LOPID [Concomitant]
     Indication: HYPERLIPIDAEMIA
     Route: 048
     Dates: start: 20040701

REACTIONS (7)
  - CARDIAC DISORDER [None]
  - CARDIAC OPERATION [None]
  - DIABETES MELLITUS [None]
  - EMOTIONAL DISTRESS [None]
  - ERECTILE DYSFUNCTION [None]
  - GASTROOESOPHAGEAL REFLUX DISEASE [None]
  - POOR PERIPHERAL CIRCULATION [None]
